FAERS Safety Report 4352800-4 (Version None)
Quarter: 2004Q2

REPORT INFORMATION
  Report Type: 
  Country: None (occurrence: None)
  Receive Date: 20040429
  Receipt Date: 20040426
  Transmission Date: 20050107
  Serious: Yes (Death, Hospitalization)
  Sender: FDA-Public Use
  Company Number: 2004UW08361

PATIENT
  Age: 54 Year
  Sex: Male
  Weight: 75.5239 kg

DRUGS (2)
  1. IRESSA [Suspect]
     Indication: NON-SMALL CELL LUNG CANCER
     Dates: start: 20030501
  2. UNSPECIFIED PAIN MEDICATION [Concomitant]

REACTIONS (1)
  - DEATH [None]
